FAERS Safety Report 8025456-7 (Version None)
Quarter: 2012Q1

REPORT INFORMATION
  Report Type: 
  Country: None (occurrence: None)
  Receive Date: 20120105
  Receipt Date: 20111227
  Transmission Date: 20120608
  Serious: Yes (Other)
  Sender: FDA-Public Use
  Company Number: JP-ABBOTT-11P-087-0886917-00

PATIENT
  Age: 47 Year
  Sex: Male

DRUGS (1)
  1. LIPIDIL [Suspect]
     Indication: HYPERLIPIDAEMIA
     Dosage: 200 MG DAILY
     Route: 048
     Dates: start: 20111203, end: 20111222

REACTIONS (1)
  - LIVER DISORDER [None]
